FAERS Safety Report 22529542 (Version 1)
Quarter: 2023Q2

REPORT INFORMATION
  Report Type: Report from Study
  Country: US (occurrence: US)
  Receive Date: 20230607
  Receipt Date: 20230607
  Transmission Date: 20230722
  Serious: No
  Sender: FDA-Public Use
  Company Number: US-002147023-NVSC2023US126730

PATIENT
  Sex: Female

DRUGS (1)
  1. MAYZENT [Suspect]
     Active Substance: SIPONIMOD
     Indication: Product used for unknown indication
     Dosage: 2 MG, QD
     Route: 048

REACTIONS (6)
  - Skin burning sensation [Unknown]
  - Muscle spasms [Unknown]
  - Asthenia [Unknown]
  - Aphasia [Unknown]
  - Concomitant disease aggravated [Unknown]
  - Mammogram abnormal [Unknown]
